FAERS Safety Report 16784813 (Version 1)
Quarter: 2019Q3

REPORT INFORMATION
  Report Type: Spontaneous
  Country: SE (occurrence: SE)
  Receive Date: 20190909
  Receipt Date: 20190909
  Transmission Date: 20191005
  Serious: Yes (Life-Threatening)
  Sender: FDA-Public Use
  Company Number: SE-TEVA-2019-SE-1103406

PATIENT
  Age: 61 Year
  Sex: Female

DRUGS (4)
  1. OXALIPLATIN. [Suspect]
     Active Substance: OXALIPLATIN
     Indication: COLON CANCER
     Dosage: CURE 2
     Dates: start: 20190807, end: 20190807
  2. OXALIPLATIN. [Suspect]
     Active Substance: OXALIPLATIN
     Dosage: CURE 1
     Dates: start: 2019, end: 2019
  3. CLEMASTINE [Concomitant]
     Active Substance: CLEMASTINE
  4. FRAGMIN [Concomitant]
     Active Substance: DALTEPARIN SODIUM
     Dates: start: 201907

REACTIONS (5)
  - Diplopia [Unknown]
  - Hypokalaemia [Unknown]
  - Dyspnoea [Unknown]
  - Tremor [Unknown]
  - Dysarthria [Unknown]

NARRATIVE: CASE EVENT DATE: 20190807
